FAERS Safety Report 16185537 (Version 3)
Quarter: 2019Q2

REPORT INFORMATION
  Report Type: Spontaneous
  Country: US (occurrence: US)
  Receive Date: 20190411
  Receipt Date: 20190515
  Transmission Date: 20190711
  Serious: Yes (Other)
  Sender: FDA-Public Use
  Company Number: US-BAYER-2019-068777

PATIENT
  Sex: Male

DRUGS (1)
  1. JIVI [Suspect]
     Active Substance: DAMOCTOCOG ALFA PEGOL

REACTIONS (3)
  - Surgery [None]
  - Post procedural haemorrhage [Recovered/Resolved]
  - Therapeutic product effect variable [None]
